FAERS Safety Report 23334606 (Version 1)
Quarter: 2023Q4

REPORT INFORMATION
  Report Type: Other
  Country: US (occurrence: US)
  Receive Date: 20231224
  Receipt Date: 20231224
  Transmission Date: 20240109
  Serious: No
  Sender: FDA-Public Use
  Company Number: US-TRAVERE-2023TVT00585

PATIENT
  Age: 14 Year
  Sex: Female

DRUGS (4)
  1. CHOLBAM [Suspect]
     Active Substance: CHOLIC ACID
     Indication: Bile acid synthesis disorder
     Route: 048
     Dates: start: 20230429
  2. VITAMIN D [Concomitant]
     Active Substance: VITAMIN D NOS
  3. VITAMIN E [Concomitant]
     Active Substance: .ALPHA.-TOCOPHEROL
  4. VITAMIN K [Concomitant]
     Active Substance: PHYTONADIONE

REACTIONS (1)
  - Headache [Recovered/Resolved]
